FAERS Safety Report 13036228 (Version 6)
Quarter: 2017Q1

REPORT INFORMATION
  Report Type: Report from Study
  Country: None (occurrence: HU)
  Receive Date: 20161216
  Receipt Date: 20170202
  Transmission Date: 20170428
  Serious: Yes (Death, Hospitalization)
  Sender: FDA-Public Use
  Company Number: HU-ABBVIE-16P-076-1808594-00

PATIENT
  Age: 63 Year
  Sex: Male
  Weight: 63 kg

DRUGS (5)
  1. DUODOPA [Suspect]
     Active Substance: CARBIDOPA\LEVODOPA
     Indication: PARKINSON^S DISEASE
     Dosage: MORNING DOSE 8.0ML; CONTINUOUS DOSE 3.5ML/H; EXTRA DOSE 1.5ML
     Route: 050
     Dates: start: 20161026, end: 20161210
  2. ELIQUIS [Concomitant]
     Active Substance: APIXABAN
     Indication: ATRIAL FIBRILLATION
     Route: 048
     Dates: start: 20161103, end: 20161210
  3. RAWEL SR [Concomitant]
     Indication: HYPERTENSION
     Route: 048
     Dates: start: 201608
  4. CONCOR [Concomitant]
     Active Substance: BISOPROLOL FUMARATE
     Indication: HYPERTENSION
     Route: 048
     Dates: start: 201608
  5. DUODOPA [Suspect]
     Active Substance: CARBIDOPA\LEVODOPA
     Route: 050

REACTIONS (19)
  - Diarrhoea [Not Recovered/Not Resolved]
  - Oesophagitis [Unknown]
  - Head injury [Fatal]
  - Nausea [Not Recovered/Not Resolved]
  - Device kink [Recovered/Resolved]
  - Arteriosclerosis coronary artery [Fatal]
  - Fall [Fatal]
  - Loss of consciousness [Fatal]
  - Oedema peripheral [Recovering/Resolving]
  - Fungal oesophagitis [Unknown]
  - Asthenia [Not Recovered/Not Resolved]
  - Incontinence [Not Recovered/Not Resolved]
  - Vomiting [Not Recovered/Not Resolved]
  - Cardiac failure [Fatal]
  - Faeces discoloured [Not Recovered/Not Resolved]
  - Impaired gastric emptying [Unknown]
  - International normalised ratio increased [Unknown]
  - Mobility decreased [Not Recovered/Not Resolved]
  - Hydrothorax [Recovering/Resolving]

NARRATIVE: CASE EVENT DATE: 2016
